FAERS Safety Report 4472745-9 (Version None)
Quarter: 2004Q4

REPORT INFORMATION
  Report Type: 
  Country: None (occurrence: None)
  Receive Date: 20041008
  Receipt Date: 20040922
  Transmission Date: 20050328
  Serious: Yes (Hospitalization)
  Sender: FDA-Public Use
  Company Number: FR_040904842

PATIENT
  Age: 50 Year
  Sex: Male

DRUGS (6)
  1. GEMZAR [Suspect]
     Indication: ADENOCARCINOMA
     Dosage: 1170 MG OTHER
     Route: 050
     Dates: start: 20040630
  2. SOLUPRED (PREDNISOLONE SODIUM SULFOBENZOATE) [Concomitant]
  3. IMOVANE (ZOPICLONE) [Concomitant]
  4. ARANESP [Concomitant]
  5. TOPALGIC (TRAMADOL HYDROCHLORIDE) [Concomitant]
  6. EFFEXOR [Concomitant]

REACTIONS (3)
  - ABDOMINAL PAIN [None]
  - BLOOD CREATININE INCREASED [None]
  - HAEMATURIA [None]
